FAERS Safety Report 13899536 (Version 1)
Quarter: 2017Q3

REPORT INFORMATION
  Report Type: Spontaneous
  Country: CH (occurrence: CH)
  Receive Date: 20170824
  Receipt Date: 20170824
  Transmission Date: 20171127
  Serious: Yes (Other)
  Sender: FDA-Public Use
  Company Number: CH-LUPIN PHARMACEUTICALS INC.-2017-04798

PATIENT
  Sex: Male
  Weight: 2.45 kg

DRUGS (5)
  1. CARVEDILOL. [Suspect]
     Active Substance: CARVEDILOL
     Indication: SINUS TACHYCARDIA
     Dosage: 0.04 MG/KG/DOSE, BID
     Route: 065
  2. SPIRONOLACTONE. [Concomitant]
     Active Substance: SPIRONOLACTONE
     Indication: DIURETIC THERAPY
     Dosage: 1.2 MG/KG, QD
     Route: 048
  3. FUROSEMID                          /00032601/ [Concomitant]
     Active Substance: FUROSEMIDE
     Indication: DIURETIC THERAPY
     Dosage: 1.6?2.5 MG/KG, QD
     Route: 048
  4. CARVEDILOL. [Interacting]
     Active Substance: CARVEDILOL
     Indication: BLOOD PRESSURE SYSTOLIC INCREASED
  5. DIGOXIN. [Interacting]
     Active Substance: DIGOXIN
     Indication: POSITIVE CARDIAC INOTROPIC EFFECT
     Dosage: 3 ?G/KG, QD
     Route: 065

REACTIONS (4)
  - Arrhythmia [Recovered/Resolved]
  - Atrioventricular block [Unknown]
  - Drug interaction [Unknown]
  - Toxicity to various agents [Recovered/Resolved]
